FAERS Safety Report 23851865 (Version 3)
Quarter: 2024Q2

REPORT INFORMATION
  Report Type: Report from Study
  Country: US (occurrence: US)
  Receive Date: 20240514
  Receipt Date: 20240605
  Transmission Date: 20240715
  Serious: Yes (Hospitalization, Other)
  Sender: FDA-Public Use
  Company Number: US-HORIZON THERAPEUTICS-HZN-2024-005312

PATIENT
  Age: 18 Year
  Sex: Male

DRUGS (2)
  1. ACTIMMUNE [Suspect]
     Active Substance: INTERFERON GAMMA-1B
     Indication: Neutrophil function disorder
     Dosage: 0.37 ML, 3 TIMES WEEKLY (0.158 MILLILITRE), 1 IN 56 HOUR
     Route: 058
     Dates: start: 201709
  2. ACTIMMUNE [Suspect]
     Active Substance: INTERFERON GAMMA-1B
     Indication: Chronic granulomatous disease
     Dosage: UNK
     Route: 058
     Dates: start: 20240208

REACTIONS (5)
  - Central nervous system infection [Not Recovered/Not Resolved]
  - Pneumonia [Unknown]
  - Acne [Unknown]
  - Hepatic enzyme increased [Recovering/Resolving]
  - Treatment noncompliance [Unknown]

NARRATIVE: CASE EVENT DATE: 20240101
